FAERS Safety Report 6236345-2 (Version None)
Quarter: 2009Q2

REPORT INFORMATION
  Report Type: 
  Country: None (occurrence: None)
  Receive Date: 20090617
  Receipt Date: 20090609
  Transmission Date: 20091009
  Serious: Yes (Hospitalization)
  Sender: FDA-Public Use
  Company Number: 1000006553

PATIENT
  Age: 54 Year
  Sex: Female
  Weight: 73.7095 kg

DRUGS (12)
  1. MILNACIPRAN (OPEN-LABEL) (MILNACIPRAN HYDROCHLORIDE) [Suspect]
     Indication: FIBROMYALGIA
     Dosage: 100 MG (50 MG, 2 IN 1 D), ORAL
     Route: 048
     Dates: start: 20080701
  2. MOBIC [Concomitant]
  3. FINACEA (TABLETS) [Concomitant]
  4. CALCIUM [Concomitant]
  5. NICOMIDE [Concomitant]
  6. ADVAIR (INHALANT) [Concomitant]
  7. XOPENEX (INHALANT) [Concomitant]
  8. EXTRA STRENGTH TYLENOL [Concomitant]
  9. CLONIDINE [Concomitant]
  10. VAGIFEM [Concomitant]
  11. QUININE OTC [Concomitant]
  12. AMBIEN CR [Concomitant]

REACTIONS (5)
  - BLOOD PRESSURE INCREASED [None]
  - BODY TEMPERATURE DECREASED [None]
  - COMMUNICATION DISORDER [None]
  - CONFUSIONAL STATE [None]
  - HEADACHE [None]
